FAERS Safety Report 5198415-X (Version None)
Quarter: 2006Q4

REPORT INFORMATION
  Report Type: 
  Country: None (occurrence: None)
  Receive Date: 20061229
  Receipt Date: 20061229
  Transmission Date: 20070319
  Serious: No
  Sender: FDA-Public Use
  Company Number: None

PATIENT
  Sex: Male
  Weight: 99.7913 kg

DRUGS (3)
  1. ETHAMBUTOL HYDROCHLORIDE [Suspect]
     Indication: BONE TUBERCULOSIS
     Dosage: 2400,2000,1800, 1600 ONCE DAILY
     Dates: start: 20050825, end: 20060125
  2. ETHAMBUTOL HYDROCHLORIDE [Suspect]
     Indication: MYCOBACTERIAL INFECTION
     Dosage: 2400,2000,1800, 1600 ONCE DAILY
     Dates: start: 20050825, end: 20060125
  3. BCG [Suspect]
     Indication: BLADDER CANCER
     Dosage: ONCE WEEKLY, 6 WKS (BLADDER WASH)
     Route: 043

REACTIONS (5)
  - BLINDNESS [None]
  - HYPOAESTHESIA [None]
  - IMPAIRED DRIVING ABILITY [None]
  - IMPAIRED WORK ABILITY [None]
  - VISION BLURRED [None]
